FAERS Safety Report 17544059 (Version 1)
Quarter: 2020Q1

REPORT INFORMATION
  Report Type: Spontaneous
  Country: FR (occurrence: FR)
  Receive Date: 20200316
  Receipt Date: 20200316
  Transmission Date: 20200409
  Serious: Yes (Hospitalization)
  Sender: FDA-Public Use
  Company Number: NVSC2020FR068144

PATIENT
  Age: 76 Year
  Sex: Male

DRUGS (2)
  1. ELIQUIS [Interacting]
     Active Substance: APIXABAN
     Indication: ATRIAL FIBRILLATION
     Dosage: 10 MG, QD
     Route: 048
     Dates: end: 20191122
  2. TEGRETOL [Suspect]
     Active Substance: CARBAMAZEPINE
     Indication: ISCHAEMIC STROKE
     Dosage: UNK
     Route: 048
     Dates: end: 20191128

REACTIONS (2)
  - Drug ineffective [Recovered/Resolved]
  - Ischaemic stroke [Recovered/Resolved]

NARRATIVE: CASE EVENT DATE: 20191122
